FAERS Safety Report 5103900-2 (Version None)
Quarter: 2006Q3

REPORT INFORMATION
  Report Type: 
  Country: None (occurrence: None)
  Receive Date: 20060913
  Receipt Date: 20060904
  Transmission Date: 20061208
  Serious: Yes (Other)
  Sender: FDA-Public Use
  Company Number: PHBS2006CH13840

PATIENT
  Age: 1 Day
  Sex: Male
  Weight: 1.22 kg

DRUGS (4)
  1. RITALIN [Suspect]
     Route: 064
  2. ALCOHOL [Concomitant]
     Route: 064
  3. NICOTINE [Concomitant]
     Route: 064
  4. CANNABIS [Concomitant]
     Route: 064

REACTIONS (3)
  - DRUG EXPOSURE DURING PREGNANCY [None]
  - NEONATAL RESPIRATORY DISTRESS SYNDROME [None]
  - PREMATURE BABY [None]
